FAERS Safety Report 8601376-1 (Version None)
Quarter: 2012Q3

REPORT INFORMATION
  Report Type: 
  Country: None (occurrence: None)
  Receive Date: 20120806
  Receipt Date: 20120806
  Transmission Date: 20120928
  Serious: No
  Sender: FDA-Public Use
  Company Number: None

PATIENT
  Age: 29 Year
  Sex: Female
  Weight: 62.5964 kg

DRUGS (1)
  1. CREST PRO-HEALTH ORAL RINSE PROCTER + GAMBLE [Suspect]
     Indication: DENTAL DISORDER PROPHYLAXIS
     Dosage: 20 ML BID PO
     Route: 048
     Dates: start: 20110912, end: 20120803

REACTIONS (1)
  - TOOTH DISCOLOURATION [None]
